FAERS Safety Report 6426676-5 (Version None)
Quarter: 2009Q4

REPORT INFORMATION
  Report Type: 
  Country: None (occurrence: None)
  Receive Date: 20091104
  Receipt Date: 20091028
  Transmission Date: 20100525
  Serious: Yes (Hospitalization, Other)
  Sender: FDA-Public Use
  Company Number: US-BAYER-200933158NA

PATIENT
  Age: 72 Year
  Sex: Female
  Weight: 84 kg

DRUGS (13)
  1. SORAFENIB [Suspect]
     Indication: PANCREATIC CARCINOMA
     Dosage: TOTAL DAILY DOSE: 400 MG  UNIT DOSE: 200 MG
     Route: 048
     Dates: start: 20090623, end: 20090729
  2. SORAFENIB [Suspect]
     Dosage: TOTAL DAILY DOSE: 400 MG  UNIT DOSE: 200 MG
     Route: 048
     Dates: start: 20090731
  3. GEMCITABINE [Suspect]
     Indication: PANCREATIC CARCINOMA
     Dosage: TOTAL DAILY DOSE: 1110 MG
     Route: 042
     Dates: start: 20090623, end: 20090101
  4. GEMCITABINE [Suspect]
     Dosage: TOTAL DAILY DOSE: 1800 MG
     Route: 042
     Dates: start: 20090101, end: 20091019
  5. COUMADIN [Concomitant]
     Indication: THROMBOSIS
     Dosage: 5 MG AND 7 MG ALTERNATING DOSES
     Dates: start: 20090914
  6. LIPITOR [Concomitant]
     Indication: HYPERCHOLESTEROLAEMIA
  7. ATENOLOL [Concomitant]
     Indication: HYPERTENSION
  8. LISINOPRIL [Concomitant]
     Indication: HYPERTENSION
  9. TRIAMTERENE AND HYDROCHLOROTHIAZIDE [Concomitant]
     Indication: HYPERTENSION
  10. HUMALOG [Concomitant]
     Indication: DIABETES MELLITUS
  11. INSULIN LENTE [Concomitant]
     Indication: DIABETES MELLITUS
  12. LASIX [Concomitant]
     Indication: OEDEMA
  13. MEGACE [Concomitant]
     Indication: DECREASED APPETITE

REACTIONS (6)
  - CONFUSIONAL STATE [None]
  - DEEP VEIN THROMBOSIS [None]
  - DYSPNOEA [None]
  - LETHARGY [None]
  - PULMONARY EMBOLISM [None]
  - PYREXIA [None]
